FAERS Safety Report 13704183 (Version 1)
Quarter: 2017Q2

REPORT INFORMATION
  Report Type: Spontaneous
  Country: RO (occurrence: RO)
  Receive Date: 20170630
  Receipt Date: 20170630
  Transmission Date: 20170830
  Serious: Yes (Life-Threatening)
  Sender: FDA-Public Use
  Company Number: RO-ASTRAZENECA-2017SE66846

PATIENT
  Age: 67 Year
  Sex: Female
  Weight: 80 kg

DRUGS (1)
  1. FASLODEX [Suspect]
     Active Substance: FULVESTRANT
     Indication: BREAST CANCER METASTATIC
     Route: 030
     Dates: start: 20170210, end: 20170622

REACTIONS (5)
  - Heart rate increased [Recovered/Resolved]
  - Feeling hot [Recovered/Resolved]
  - Tachypnoea [Recovered/Resolved]
  - Bronchospasm [Recovered/Resolved]
  - Administration site pain [Recovered/Resolved]

NARRATIVE: CASE EVENT DATE: 20170622
